FAERS Safety Report 24217251 (Version 3)
Quarter: 2025Q1

REPORT INFORMATION
  Report Type: Spontaneous
  Country: PL (occurrence: PL)
  Receive Date: 20240816
  Receipt Date: 20250214
  Transmission Date: 20250409
  Serious: Yes (Other)
  Sender: AUROBINDO
  Company Number: PL-AUROBINDO-AUR-APL-2024-038107

PATIENT
  Age: 7 Year
  Sex: Female
  Weight: 18 kg

DRUGS (6)
  1. ACETAMINOPHEN [Suspect]
     Active Substance: ACETAMINOPHEN
     Indication: Headache
     Route: 065
  2. ACETAMINOPHEN [Suspect]
     Active Substance: ACETAMINOPHEN
     Indication: Body temperature increased
  3. CEFACLOR [Suspect]
     Active Substance: CEFACLOR
     Indication: Cough
     Dosage: 20 MILLIGRAM/KILOGRAM, 3 TIMES A DAY
     Route: 065
  4. CEFACLOR [Suspect]
     Active Substance: CEFACLOR
     Indication: Pyrexia
     Dosage: 40 MILLIGRAM/KILOGRAM, TWO TIMES A DAY
     Route: 065
  5. CEFACLOR [Suspect]
     Active Substance: CEFACLOR
     Route: 048
  6. OCTENIDINE [Concomitant]
     Active Substance: OCTENIDINE
     Indication: Antibiotic therapy
     Route: 061

REACTIONS (9)
  - Abdominal pain [Recovered/Resolved]
  - Loss of consciousness [Recovered/Resolved]
  - Pruritus [Recovered/Resolved]
  - Anaphylactic reaction [Recovered/Resolved]
  - Burning sensation [Recovered/Resolved]
  - Unevaluable event [Unknown]
  - Drug ineffective [Unknown]
  - Treatment noncompliance [Unknown]
  - Off label use [Unknown]
